FAERS Safety Report 4417088-4 (Version None)
Quarter: 2004Q2

REPORT INFORMATION
  Report Type: 
  Country: None (occurrence: None)
  Receive Date: 20040629
  Receipt Date: 20040211
  Transmission Date: 20050107
  Serious: Yes (Hospitalization)
  Sender: FDA-Public Use
  Company Number: US066324

PATIENT
  Age: 62 Year
  Sex: Male

DRUGS (8)
  1. ARANESP [Suspect]
     Indication: RENAL FAILURE CHRONIC
     Dosage: 60 MCG, 1 IN 2 WEEKS
     Dates: start: 20031001, end: 20040201
  2. GLIBENCLAMIDE [Concomitant]
  3. BUMETANIDE [Concomitant]
  4. PHENYTOIN SODIUM [Concomitant]
  5. LISINOPRIL [Concomitant]
  6. IRON [Concomitant]
  7. NIFEDIPINE [Concomitant]
  8. LABETALOL HYDROCHLORIDE [Concomitant]

REACTIONS (2)
  - CONVULSION [None]
  - PULMONARY EMBOLISM [None]
